FAERS Safety Report 13124192 (Version 1)
Quarter: 2017Q1

REPORT INFORMATION
  Report Type: Spontaneous
  Country: PL (occurrence: PL)
  Receive Date: 20170118
  Receipt Date: 20170118
  Transmission Date: 20170428
  Serious: Yes (Other)
  Sender: FDA-Public Use
  Company Number: PL-ROCHE-1879550

PATIENT
  Age: 46 Year
  Sex: Female

DRUGS (2)
  1. PACLITAXEL. [Suspect]
     Active Substance: PACLITAXEL
     Indication: BREAST CANCER METASTATIC
     Route: 065
  2. HERCEPTIN [Suspect]
     Active Substance: TRASTUZUMAB
     Indication: BREAST CANCER METASTATIC
     Dosage: SINCE FEBRUARY/MARCH 2016
     Route: 065

REACTIONS (1)
  - Brain neoplasm [Unknown]

NARRATIVE: CASE EVENT DATE: 20170103
